FAERS Safety Report 19454097 (Version 7)
Quarter: 2022Q1

REPORT INFORMATION
  Report Type: Spontaneous
  Country: US (occurrence: US)
  Receive Date: 20210623
  Receipt Date: 20220307
  Transmission Date: 20220423
  Serious: No
  Sender: FDA-Public Use
  Company Number: US-PFIZER INC-2021612063

PATIENT
  Age: 1 Year
  Sex: Male

DRUGS (7)
  1. GENOTROPIN [Suspect]
     Active Substance: SOMATROPIN
     Indication: Hormone level abnormal
     Dosage: 0.1 MG, ALTERNATE DAY (ALTERNATES BETWEEN 0.1MG INJECTION AT 9:00AM ON 1 DAY + 0.2MG INJECTION THE N
  2. GENOTROPIN [Suspect]
     Active Substance: SOMATROPIN
     Dosage: ALTERNATES BETWEEN 0.1MG INJECTION AT 9:00AM ON 1 DAY + 0.2MG INJECTION THE NEXT DAY IN THE THIGH
  3. GENOTROPIN [Suspect]
     Active Substance: SOMATROPIN
     Dosage: 0.2 MG, ALTERNATE DAY (ALTERNATES BETWEEN 0.1MG INJECTION AT 9:00AM ON 1 DAY + 0.2MG INJECTION THE N
     Dates: start: 202102
  4. GENOTROPIN [Suspect]
     Active Substance: SOMATROPIN
     Dosage: 0.2 MG, ALTERNATE DAY (ALTERNATES BETWEEN 0.1MG INJECTION AT 9:00AM ON 1 DAY + 0.2MG INJECTION THE N
     Dates: start: 202102
  5. GENOTROPIN [Suspect]
     Active Substance: SOMATROPIN
     Dosage: UNK, DAILY (INJECTION DAILY)
  6. HYDROCORTISONE [Concomitant]
     Active Substance: HYDROCORTISONE
     Indication: Hypoglycaemia
     Dosage: UNK (UNKNOWN DOSE, BY MOUTH)
     Route: 048
  7. LEVOTHYROXINE [Concomitant]
     Active Substance: LEVOTHYROXINE
     Indication: Thyroid disorder
     Dosage: UNK (UNKNOWN DOSE, BY MOUTH)
     Route: 048

REACTIONS (8)
  - Pyrexia [Recovered/Resolved]
  - Off label use [Unknown]
  - Product use issue [Unknown]
  - Drug dose omission by device [Unknown]
  - Wrong technique in device usage process [Unknown]
  - Device mechanical issue [Unknown]
  - Device breakage [Unknown]
  - Device leakage [Unknown]

NARRATIVE: CASE EVENT DATE: 20210501
